FAERS Safety Report 22817915 (Version 5)
Quarter: 2024Q2

REPORT INFORMATION
  Report Type: Report from Study
  Country: US (occurrence: US)
  Receive Date: 20230813
  Receipt Date: 20240618
  Transmission Date: 20240716
  Serious: Yes (Other)
  Sender: FDA-Public Use
  Company Number: US-ABBVIE-5364054

PATIENT
  Sex: Male

DRUGS (4)
  1. HUMIRA [Suspect]
     Active Substance: ADALIMUMAB
     Indication: Rheumatoid arthritis
     Dosage: FORM STRENGTH: 40 MG, CITRATE FREE?LAST ADMIN DATE: 2023
     Route: 058
     Dates: start: 20230216
  2. HUMIRA [Suspect]
     Active Substance: ADALIMUMAB
     Dosage: FORM STRENGTH: 40 MG, CITRATE FREE
     Route: 058
     Dates: start: 2023
  3. HUMIRA [Suspect]
     Active Substance: ADALIMUMAB
     Route: 058
  4. PREDNISONE [Concomitant]
     Active Substance: PREDNISONE
     Indication: Product used for unknown indication

REACTIONS (16)
  - Carpal tunnel syndrome [Recovering/Resolving]
  - Myalgia [Unknown]
  - Gastrointestinal disorder [Recovering/Resolving]
  - Nasal septum deviation [Recovering/Resolving]
  - Influenza [Unknown]
  - Cubital tunnel syndrome [Unknown]
  - Rheumatoid arthritis [Recovering/Resolving]
  - Ligament rupture [Unknown]
  - Pain [Unknown]
  - Asthenia [Recovered/Resolved]
  - Decreased appetite [Unknown]
  - Skin disorder [Not Recovered/Not Resolved]
  - Paraesthesia [Unknown]
  - Formication [Unknown]
  - Asthenia [Unknown]
  - Stress [Unknown]

NARRATIVE: CASE EVENT DATE: 20230101
